FAERS Safety Report 14006199 (Version 1)
Quarter: 2017Q3

REPORT INFORMATION
  Report Type: Spontaneous
  Country: GB (occurrence: GB)
  Receive Date: 20170924
  Receipt Date: 20170924
  Transmission Date: 20171128
  Serious: Yes (Disabling, Other)
  Sender: FDA-Public Use
  Company Number: GB-MYLANLABS-2017M1058139

PATIENT
  Age: 14 Year
  Weight: 78.2 kg

DRUGS (1)
  1. XENIDATE XL [Suspect]
     Active Substance: METHYLPHENIDATE HYDROCHLORIDE
     Indication: ATTENTION DEFICIT/HYPERACTIVITY DISORDER
     Dates: start: 20170615, end: 20170617

REACTIONS (4)
  - Depressed mood [Recovered/Resolved]
  - Suicidal ideation [Recovered/Resolved]
  - Aggression [Recovered/Resolved]
  - Social avoidant behaviour [Recovered/Resolved]

NARRATIVE: CASE EVENT DATE: 20170615
